FAERS Safety Report 10490472 (Version 3)
Quarter: 2014Q4

REPORT INFORMATION
  Report Type: Spontaneous
  Country: CZ (occurrence: CZ)
  Receive Date: 20141002
  Receipt Date: 20141008
  Transmission Date: 20150528
  Serious: Yes (Death)
  Sender: FDA-Public Use
  Company Number: CZ-PFIZER INC-2014267353

PATIENT
  Age: 65 Year
  Sex: Male

DRUGS (5)
  1. CALCIUM GLUCONICUM /00060701/ [Concomitant]
     Dosage: UNK
  2. SOLU-MEDROL [Suspect]
     Active Substance: METHYLPREDNISOLONE SODIUM SUCCINATE
     Indication: DYSPNOEA
     Dosage: 500 MG, SINGLE
  3. DITHIADEN [Concomitant]
     Active Substance: BISULEPIN
     Dosage: UNK
  4. SYNTOPHYLLIN [Concomitant]
     Dosage: UNK
  5. ADRENALIN [Concomitant]
     Active Substance: EPINEPHRINE

REACTIONS (2)
  - Disease progression [Fatal]
  - Dyspnoea [Fatal]
